FAERS Safety Report 4394325-6 (Version None)
Quarter: 2004Q3

REPORT INFORMATION
  Report Type: 
  Country: None (occurrence: None)
  Receive Date: 20040706
  Receipt Date: 20040617
  Transmission Date: 20050211
  Serious: Yes (Death)
  Sender: FDA-Public Use
  Company Number: US013345

PATIENT
  Age: 42 Year
  Sex: Male

DRUGS (2)
  1. GABITRIL [Suspect]
     Dosage: 4 MG BID ORAL
     Route: 048
  2. ZOLOFT [Suspect]

REACTIONS (1)
  - ACCIDENTAL OVERDOSE [None]
